FAERS Safety Report 5810562-5 (Version None)
Quarter: 2008Q3

REPORT INFORMATION
  Report Type: 
  Country: None (occurrence: None)
  Receive Date: 20080715
  Receipt Date: 20080711
  Transmission Date: 20090109
  Serious: Yes (Hospitalization)
  Sender: FDA-Public Use
  Company Number: US-ASTRAZENECA-2008UW09195

PATIENT
  Age: 11536 Day
  Sex: Male

DRUGS (3)
  1. SEROQUEL [Suspect]
     Indication: AFFECTIVE DISORDER
     Dosage: 100 MG QAM AND Q2PM, 400 MG HS
     Route: 048
     Dates: start: 20071201, end: 20080426
  2. DEPAKOTE [Concomitant]
     Indication: AFFECTIVE DISORDER
     Route: 048
     Dates: start: 20020101
  3. VISTARIL [Concomitant]
     Route: 048

REACTIONS (4)
  - ABDOMINAL PAIN [None]
  - CHOLANGITIS [None]
  - HEPATITIS [None]
  - PYREXIA [None]
